FAERS Safety Report 11982513 (Version 1)
Quarter: 2016Q1

REPORT INFORMATION
  Report Type: Spontaneous
  Country: US (occurrence: None)
  Receive Date: 20160129
  Receipt Date: 20160129
  Transmission Date: 20160526
  Serious: Yes (Other)
  Sender: FDA-Public Use
  Company Number: None

PATIENT
  Age: 73 Year
  Sex: Male
  Weight: 102 kg

DRUGS (1)
  1. DARATUMUMAB 400MG/20ML AND 100MG/5ML JANSSEN [Suspect]
     Active Substance: DARATUMUMAB
     Indication: PLASMA CELL MYELOMA
     Route: 042
     Dates: start: 20160121, end: 20160128

REACTIONS (4)
  - Product preparation error [None]
  - Drug titration error [None]
  - Drug dispensing error [None]
  - Infusion related reaction [None]

NARRATIVE: CASE EVENT DATE: 20160128
